FAERS Safety Report 20858145 (Version 3)
Quarter: 2022Q4

REPORT INFORMATION
  Report Type: Spontaneous
  Country: US (occurrence: US)
  Receive Date: 20220521
  Receipt Date: 20221013
  Transmission Date: 20230113
  Serious: No
  Sender: FDA-Public Use
  Company Number: US-BRISTOL-MYERS SQUIBB COMPANY-2022-024216

PATIENT
  Age: 62 Year
  Sex: Female

DRUGS (1)
  1. ORENCIA [Suspect]
     Active Substance: ABATACEPT
     Indication: Rheumatoid arthritis
     Dosage: LOT NUMBER: ACC1033 WITH EXPIRY DATE: 02-FEB-2024?LOT NUMBER: ACD3407 WITH EXPIRY DATE: 31-MAR-2024
     Route: 058
     Dates: start: 20220330

REACTIONS (1)
  - Pain [Unknown]
